FAERS Safety Report 5586029-9 (Version None)
Quarter: 2007Q4

REPORT INFORMATION
  Report Type: 
  Country: None (occurrence: None)
  Receive Date: 20071205
  Receipt Date: 20071004
  Transmission Date: 20080405
  Serious: Yes (Life-Threatening, Other)
  Sender: FDA-Public Use
  Company Number: US-WYE-H00525807

PATIENT
  Age: 51 Year
  Sex: Female

DRUGS (3)
  1. EFFEXOR XR [Suspect]
     Indication: DEPRESSION
     Dosage: 150 MG 1X PER 1 DAY, ORAL ; 75 MG 1X PER 1 DAY, ORAL
     Route: 048
     Dates: start: 20070726, end: 20070101
  2. EFFEXOR XR [Suspect]
     Indication: DEPRESSION
     Dosage: 150 MG 1X PER 1 DAY, ORAL ; 75 MG 1X PER 1 DAY, ORAL
     Route: 048
     Dates: start: 20070101, end: 20070915
  3. ATIVAN [Concomitant]

REACTIONS (1)
  - CONVULSION [None]
